FAERS Safety Report 20758653 (Version 1)
Quarter: 2022Q2

REPORT INFORMATION
  Report Type: Spontaneous
  Country: US (occurrence: US)
  Receive Date: 20220427
  Receipt Date: 20220427
  Transmission Date: 20220721
  Serious: No
  Sender: FDA-Public Use
  Company Number: US-PFIZER INC-202101224082

PATIENT
  Age: 68 Year
  Sex: Female

DRUGS (2)
  1. BRAFTOVI [Suspect]
     Active Substance: ENCORAFENIB
     Indication: Anaplastic thyroid cancer
     Dosage: 450 MG, DAILY
     Route: 048
  2. MEKTOVI [Suspect]
     Active Substance: BINIMETINIB
     Indication: Anaplastic thyroid cancer
     Dosage: 45 MG, 2X/DAY(3 TABLETS TWICE A DAY)
     Route: 048

REACTIONS (4)
  - Cognitive disorder [Unknown]
  - Blood pressure increased [Unknown]
  - Neoplasm progression [Unknown]
  - Product use in unapproved indication [Unknown]
